FAERS Safety Report 9422469 (Version 1)
Quarter: 2013Q3

REPORT INFORMATION
  Report Type: Spontaneous
  Country: US (occurrence: US)
  Receive Date: 20130726
  Receipt Date: 20130726
  Transmission Date: 20140515
  Serious: Yes (Other)
  Sender: FDA-Public Use
  Company Number: US-ASTRAZENECA-2013SE55347

PATIENT
  Age: 47 Year
  Sex: Male

DRUGS (1)
  1. CRESTOR [Suspect]
     Dosage: NOT REPORTED
     Route: 048

REACTIONS (1)
  - Rhabdomyolysis [Unknown]
